FAERS Safety Report 9127600 (Version 2)
Quarter: 2013Q2

REPORT INFORMATION
  Report Type: Report from Study
  Country: DE (occurrence: DE)
  Receive Date: 20130228
  Receipt Date: 20130605
  Transmission Date: 20140414
  Serious: Yes (Hospitalization)
  Sender: FDA-Public Use
  Company Number: DE-UCBSA-078905

PATIENT
  Age: 53 Year
  Sex: Female

DRUGS (5)
  1. VIMPAT [Suspect]
     Indication: EPILEPSY
     Dosage: DAILY DOSE :50 MG
     Dates: start: 20090115, end: 2009
  2. VIMPAT [Suspect]
     Indication: EPILEPSY
     Dosage: DAILY DOSE:150 MG
     Dates: start: 2009
  3. TOPIRAMATE [Concomitant]
     Indication: EPILEPSY
     Dosage: DAILY DOSE: 50 MG
     Dates: end: 2009
  4. CLOBAZAM [Concomitant]
     Indication: EPILEPSY
     Dosage: DAILY DOSE: 10 MG
     Dates: end: 2009
  5. OXCARBAZEPINE [Concomitant]
     Indication: EPILEPSY
     Dosage: DAILY DOSE: 900 MG

REACTIONS (1)
  - Vagal nerve stimulator implantation [Unknown]
